FAERS Safety Report 8790263 (Version 1)
Quarter: 2012Q4

REPORT INFORMATION
  Report Type: Report from Study
  Country: CA (occurrence: CA)
  Receive Date: 20120917
  Receipt Date: 20120917
  Transmission Date: 20130627
  Serious: Yes (Hospitalization)
  Sender: FDA-Public Use
  Company Number: CA-JNJFOC-20120903192

PATIENT
  Age: 36 None
  Sex: Female
  Weight: 98 kg

DRUGS (7)
  1. REMICADE [Suspect]
     Indication: COLITIS ULCERATIVE
     Route: 042
     Dates: start: 20111216
  2. PREDNISONE [Concomitant]
     Route: 048
  3. CORTIFOAM [Concomitant]
     Route: 054
  4. IRON SUPPLEMENTS [Concomitant]
     Route: 065
  5. CALCIUM [Concomitant]
     Route: 048
  6. VITAMIN D [Concomitant]
     Route: 048
  7. CITALOPRAM [Concomitant]
     Route: 048

REACTIONS (2)
  - Colitis ulcerative [Not Recovered/Not Resolved]
  - Haemorrhoids [Not Recovered/Not Resolved]
